FAERS Safety Report 4796334-1 (Version None)
Quarter: 2005Q4

REPORT INFORMATION
  Report Type: 
  Country: None (occurrence: None)
  Receive Date: 20051007
  Receipt Date: 20051003
  Transmission Date: 20060501
  Serious: Yes (Disabling, Other)
  Sender: FDA-Public Use
  Company Number: 200511919BWH

PATIENT
  Age: 72 Year
  Sex: Male

DRUGS (2)
  1. LEVITRA [Suspect]
     Indication: ERECTILE DYSFUNCTION
     Dosage: 10 MG, OW, ORAL
     Route: 048
     Dates: start: 20031201
  2. VITAMINS [Concomitant]

REACTIONS (2)
  - BLINDNESS UNILATERAL [None]
  - CHORIORETINOPATHY [None]
